FAERS Safety Report 15213225 (Version 2)
Quarter: 2018Q4

REPORT INFORMATION
  Report Type: Spontaneous
  Country: US (occurrence: US)
  Receive Date: 20180730
  Receipt Date: 20181019
  Transmission Date: 20190204
  Serious: Yes (Death)
  Sender: FDA-Public Use
  Company Number: US-PFIZER INC-2018303386

PATIENT
  Sex: Male

DRUGS (3)
  1. CELEBREX [Suspect]
     Active Substance: CELECOXIB
     Indication: DISCOMFORT
     Dosage: 200 MG, 2X/DAY
     Route: 048
     Dates: start: 201711, end: 201803
  2. CELEBREX [Suspect]
     Active Substance: CELECOXIB
     Indication: BACK PAIN
  3. CELEBREX [Suspect]
     Active Substance: CELECOXIB
     Indication: ACCIDENT AT WORK
     Dosage: 200 MG, DAILY
     Route: 048

REACTIONS (1)
  - Myocardial infarction [Fatal]
